FAERS Safety Report 9467123 (Version 2)
Quarter: 2013Q3

REPORT INFORMATION
  Report Type: Spontaneous
  Country: DE (occurrence: DE)
  Receive Date: 20130820
  Receipt Date: 20130823
  Transmission Date: 20140515
  Serious: Yes (Other)
  Sender: FDA-Public Use
  Company Number: DE-B.I. PHARMACEUTICALS,INC./RIDGEFIELD-2013-BI-25276DE

PATIENT
  Age: 62 Year
  Sex: Male
  Weight: 120 kg

DRUGS (8)
  1. PRADAXA [Suspect]
     Indication: ATRIAL FIBRILLATION
     Dosage: 300 MG
     Dates: start: 20130801
  2. PRADAXA [Suspect]
     Route: 048
     Dates: start: 20130720
  3. POTENCY DRUG [Concomitant]
  4. RAMIPRIL [Concomitant]
     Indication: HYPERTENSION
     Dosage: 5 MG
     Route: 048
  5. METO SUCC [Concomitant]
     Indication: HYPERTENSION
     Dosage: 95 MG
     Route: 048
  6. FELODIPIN [Concomitant]
     Dosage: 10 MG
     Route: 048
  7. LEVITRA [Concomitant]
     Dosage: 10 MG
  8. HCT (HYDROCHLOROTHIAZIDE) [Concomitant]
     Dosage: 25 MG

REACTIONS (3)
  - Transient ischaemic attack [Unknown]
  - Loss of consciousness [Recovered/Resolved]
  - Dizziness [Recovered/Resolved]
